FAERS Safety Report 23818245 (Version 1)
Quarter: 2024Q2

REPORT INFORMATION
  Report Type: Spontaneous
  Country: US (occurrence: US)
  Receive Date: 20240506
  Receipt Date: 20240506
  Transmission Date: 20240716
  Serious: No
  Sender: FDA-Public Use
  Company Number: US-UCBSA-2023040024

PATIENT
  Age: 62 Year
  Sex: Female

DRUGS (1)
  1. CIMZIA [Suspect]
     Active Substance: CERTOLIZUMAB PEGOL
     Indication: Product used for unknown indication
     Dosage: 200 MILLIGRAM, OTHER
     Route: 058
     Dates: start: 202305

REACTIONS (5)
  - Blood pressure increased [Unknown]
  - Arthralgia [Unknown]
  - Joint swelling [Unknown]
  - Neck pain [Unknown]
  - Swelling [Unknown]

NARRATIVE: CASE EVENT DATE: 20230808
